FAERS Safety Report 5120489-2 (Version None)
Quarter: 2006Q4

REPORT INFORMATION
  Report Type: 
  Country: None (occurrence: None)
  Receive Date: 20061002
  Receipt Date: 20060914
  Transmission Date: 20070319
  Serious: Yes (Hospitalization)
  Sender: FDA-Public Use
  Company Number: DE200609003837

PATIENT
  Sex: Female

DRUGS (3)
  1. CYMBALTA (DULOXETINE HYDROCHLORIDE) CAPSULE [Suspect]
     Indication: PSYCHOTIC DISORDER
     Dosage: 60 MG, DAILY (1/D), ORAL
     Route: 048
     Dates: start: 20060706, end: 20060721
  2. ZYPREXA [Suspect]
     Dosage: 10 MG, DAILY (1/D), ORAL
     Route: 048
     Dates: start: 20060615, end: 20060721
  3. MIRTAZAPINE [Concomitant]

REACTIONS (2)
  - MOTOR DYSFUNCTION [None]
  - PARKINSONISM [None]
